FAERS Safety Report 4367527-2 (Version None)
Quarter: 2004Q2

REPORT INFORMATION
  Report Type: 
  Country: None (occurrence: None)
  Receive Date: 20040601
  Receipt Date: 20040521
  Transmission Date: 20050107
  Serious: Yes (Hospitalization)
  Sender: FDA-Public Use
  Company Number: DE-ROCHE-368335

PATIENT
  Sex: Female

DRUGS (1)
  1. ROCEPHIN [Suspect]
     Indication: BORRELIA INFECTION
     Dosage: DURATION OF THERAPY REPORTED AS MORE THAN THREE WEEKS.
     Route: 065

REACTIONS (3)
  - ADENOMA BENIGN [None]
  - BENIGN BILIARY NEOPLASM [None]
  - POLYP [None]
